FAERS Safety Report 17483201 (Version 1)
Quarter: 2020Q1

REPORT INFORMATION
  Report Type: Report from Study
  Country: US (occurrence: US)
  Receive Date: 20200302
  Receipt Date: 20200302
  Transmission Date: 20200409
  Serious: Yes (Life-Threatening)
  Sender: FDA-Public Use
  Company Number: US-PFIZER INC-2020082094

PATIENT

DRUGS (1)
  1. PENTOSTATIN. [Suspect]
     Active Substance: PENTOSTATIN
     Indication: ACUTE LYMPHOCYTIC LEUKAEMIA RECURRENT
     Dosage: 10 MG/M2, DAILY FOR 3 DAYS (REGIMEN 1)
     Route: 042

REACTIONS (1)
  - Depressed level of consciousness [Unknown]
